FAERS Safety Report 16568534 (Version 2)
Quarter: 2019Q3

REPORT INFORMATION
  Report Type: Spontaneous
  Country: DE (occurrence: DE)
  Receive Date: 20190712
  Receipt Date: 20190828
  Transmission Date: 20191004
  Serious: Yes (Other)
  Sender: FDA-Public Use
  Company Number: PHHY2019DE159293

PATIENT
  Sex: Female

DRUGS (3)
  1. QUETIAPINE ? 1 A PHARMA [Suspect]
     Active Substance: QUETIAPINE
     Indication: POST-TRAUMATIC STRESS DISORDER
     Dosage: 100 MG, QD
     Route: 048
  2. QUETIAPINE ? 1 A PHARMA [Suspect]
     Active Substance: QUETIAPINE
     Dosage: 50 MG, QD
     Route: 048
  3. QUETIAPINE ? 1 A PHARMA [Suspect]
     Active Substance: QUETIAPINE
     Dosage: 12.5 MG, QD (HALF OF A 25 MG TABLET)
     Route: 048

REACTIONS (6)
  - Drug dependence [Not Recovered/Not Resolved]
  - Intentional product use issue [Unknown]
  - Withdrawal syndrome [Unknown]
  - Wrong technique in product usage process [Not Recovered/Not Resolved]
  - Syncope [Unknown]
  - Feeling abnormal [Unknown]
